FAERS Safety Report 6222011-6 (Version None)
Quarter: 2009Q2

REPORT INFORMATION
  Report Type: 
  Country: None (occurrence: None)
  Receive Date: 20090608
  Receipt Date: 20090608
  Transmission Date: 20091009
  Serious: Yes (Life-Threatening)
  Sender: FDA-Public Use
  Company Number: None

PATIENT
  Age: 60 Year
  Sex: Male
  Weight: 104.3273 kg

DRUGS (1)
  1. NIACIN [Suspect]
     Indication: BLOOD CHOLESTEROL
     Dosage: 500 MG PER DAY PO
     Route: 048
     Dates: start: 20090502, end: 20090505

REACTIONS (1)
  - STEVENS-JOHNSON SYNDROME [None]
